FAERS Safety Report 5777057-9 (Version None)
Quarter: 2008Q2

REPORT INFORMATION
  Report Type: 
  Country: None (occurrence: None)
  Receive Date: 20080618
  Receipt Date: 20080613
  Transmission Date: 20081010
  Serious: Yes (Death)
  Sender: FDA-Public Use
  Company Number: JP-ASTRAZENECA-2008AP04554

PATIENT
  Age: 58 Year
  Sex: Male

DRUGS (2)
  1. IRESSA [Suspect]
     Indication: NON-SMALL CELL LUNG CANCER
     Route: 048
  2. DOCETAXEL HYDRATE [Concomitant]
     Dosage: UNKNOWN DOSE
     Route: 065

REACTIONS (1)
  - LUNG DISORDER [None]
